FAERS Safety Report 4488116-5 (Version None)
Quarter: 2004Q4

REPORT INFORMATION
  Report Type: 
  Country: None (occurrence: None)
  Receive Date: 20041028
  Receipt Date: 20040908
  Transmission Date: 20050328
  Serious: Yes (Other)
  Sender: FDA-Public Use
  Company Number: IE-ROCHE-379920

PATIENT
  Age: 25 Year
  Sex: Male
  Weight: 75 kg

DRUGS (1)
  1. LARIAM [Suspect]
     Indication: MALARIA PROPHYLAXIS
     Route: 048
     Dates: start: 20040715, end: 20040815

REACTIONS (3)
  - GRAND MAL CONVULSION [None]
  - MUSCLE TWITCHING [None]
  - VISUAL DISTURBANCE [None]
